FAERS Safety Report 17262535 (Version 6)
Quarter: 2025Q2

REPORT INFORMATION
  Report Type: Spontaneous
  Country: US (occurrence: US)
  Receive Date: 20200113
  Receipt Date: 20250428
  Transmission Date: 20250717
  Serious: No
  Sender: PFIZER
  Company Number: US-PFIZER INC-2018348302

PATIENT
  Age: 70 Year
  Sex: Female
  Weight: 58.503 kg

DRUGS (13)
  1. XELJANZ XR [Suspect]
     Active Substance: TOFACITINIB CITRATE
     Indication: Rheumatoid arthritis
     Dosage: 11 MG, DAILY (ONE TABLET EVERY DAY)
     Route: 048
     Dates: start: 20190101
  2. ALPRAZOLAM [Concomitant]
     Active Substance: ALPRAZOLAM
     Route: 048
     Dates: start: 20190101
  3. CALCIUM CITRATE [Concomitant]
     Active Substance: CALCIUM CITRATE
  4. PREDNISONE [Concomitant]
     Active Substance: PREDNISONE
  5. IBANDRONATE SODIUM [Concomitant]
     Active Substance: IBANDRONATE SODIUM
  6. DIETARY SUPPLEMENT [Concomitant]
     Active Substance: DIETARY SUPPLEMENT
  7. TYLENOL [Concomitant]
     Active Substance: ACETAMINOPHEN
  8. DICLOFENAC [Concomitant]
     Active Substance: DICLOFENAC
  9. METHYLPREDNISOLONE [Concomitant]
     Active Substance: METHYLPREDNISOLONE
  10. PREDNISONE [Concomitant]
     Active Substance: PREDNISONE
  11. TRIAMCINOLONE [Concomitant]
     Active Substance: TRIAMCINOLONE
  12. AMITRIPTYLINE [Concomitant]
     Active Substance: AMITRIPTYLINE
  13. XANAX [Concomitant]
     Active Substance: ALPRAZOLAM

REACTIONS (4)
  - Therapeutic product effect incomplete [Unknown]
  - Back pain [Unknown]
  - Blood cholesterol increased [Unknown]
  - Drug monitoring procedure not performed [Unknown]
